FAERS Safety Report 9294280 (Version 1)
Quarter: 2013Q1

REPORT INFORMATION
  Report Type: Spontaneous
  Country: US (occurrence: None)
  Receive Date: 20121227
  Receipt Date: 20121227
  Transmission Date: 20140127
  Serious: Yes (Other)
  Sender: FDA-Public Use
  Company Number: PHEH2011US011404

PATIENT
  Age: 30 Year
  Sex: Female
  Weight: 132.4 kg

DRUGS (9)
  1. EXJADE [Suspect]
     Indication: IRON METABOLISM DISORDER
     Route: 048
     Dates: start: 201110, end: 20111202
  2. EXJADE [Suspect]
     Indication: HAEMOSIDEROSIS
     Route: 048
     Dates: start: 201110, end: 20111202
  3. ACYCLOVIR (ACICLOVIR) [Concomitant]
  4. FAMOTIDINE (FAMOTIDINE) [Concomitant]
  5. HYDROXYZINE (HYDROXYZINE) [Concomitant]
  6. LORAZEPAM (LORAZEPAM) [Concomitant]
  7. PREDNISOLONE (PREDNISOLONE) [Concomitant]
  8. SCOPOLAMINE (HYOSCINE) [Concomitant]
  9. SULFAMETHOXAZOLE (SULFAMETHOXAZOLE) TABLET [Concomitant]

REACTIONS (2)
  - Protein urine present [None]
  - Blood creatinine increased [None]
